FAERS Safety Report 13930602 (Version 1)
Quarter: 2017Q3

REPORT INFORMATION
  Report Type: Spontaneous
  Country: JP (occurrence: JP)
  Receive Date: 20170901
  Receipt Date: 20170901
  Transmission Date: 20171127
  Serious: Yes (Other)
  Sender: FDA-Public Use
  Company Number: JP-DEPOMED, INC.-JP-2017DEP001704

PATIENT
  Age: 44 Year
  Sex: Male

DRUGS (5)
  1. FENTANYL CITRATE. [Suspect]
     Active Substance: FENTANYL CITRATE
     Indication: ANAESTHESIA
     Dosage: 200 ?G, UNK
  2. PROPOFOL. [Suspect]
     Active Substance: PROPOFOL
     Indication: ANAESTHESIA
     Dosage: 100 MG, UNK
  3. DESFLURANE. [Suspect]
     Active Substance: DESFLURANE
     Indication: ANAESTHESIA
     Dosage: UNK
  4. REMIFENTANIL [Suspect]
     Active Substance: REMIFENTANIL
     Indication: ANAESTHESIA
     Dosage: 0.1 ?G/KG, PER MINUTE
  5. REMIFENTANIL [Suspect]
     Active Substance: REMIFENTANIL
     Dosage: 0.1-0.25 UG/KG/MIN

REACTIONS (2)
  - Sinus arrest [Recovered/Resolved]
  - Trigemino-cardiac reflex [Recovered/Resolved]
